FAERS Safety Report 17419676 (Version 2)
Quarter: 2020Q1

REPORT INFORMATION
  Report Type: Spontaneous
  Country: US (occurrence: US)
  Receive Date: 20200214
  Receipt Date: 20200319
  Transmission Date: 20200409
  Serious: No
  Sender: FDA-Public Use
  Company Number: US-TEVA-2020-US-1184342

PATIENT
  Sex: Male

DRUGS (1)
  1. TESTOSTERONE ACTAVIS [Suspect]
     Active Substance: TESTOSTERONE
     Route: 065
     Dates: start: 201902

REACTIONS (7)
  - Swelling [Unknown]
  - Pharyngeal swelling [Unknown]
  - Tinnitus [Unknown]
  - Blood testosterone increased [Unknown]
  - Blood pressure increased [Unknown]
  - Headache [Unknown]
  - Product substitution issue [Unknown]
